FAERS Safety Report 4334274-2 (Version None)
Quarter: 2004Q1

REPORT INFORMATION
  Report Type: 
  Country: None (occurrence: None)
  Receive Date: 20040329
  Receipt Date: 20031209
  Transmission Date: 20041129
  Serious: No
  Sender: FDA-Public Use
  Company Number: 03P-163-0231945-00

PATIENT
  Age: 75 Year
  Sex: Female

DRUGS (9)
  1. HUMIRA [Suspect]
     Indication: RHEUMATOID ARTHRITIS
     Dosage: 40 MG, 1 IN 2 WK, SUBCUTANEOUS
     Route: 058
     Dates: start: 20030815
  2. CELECOXIB [Concomitant]
  3. PREDNISONE [Concomitant]
  4. SULFASALAZINE [Concomitant]
  5. LANSOPRAZOLE [Concomitant]
  6. LISINOPRIL [Concomitant]
  7. CENTRUM [Concomitant]
  8. MECLIZINE [Concomitant]
  9. SERTRALINE HYDROCHLORIDE [Concomitant]

REACTIONS (4)
  - CONDITION AGGRAVATED [None]
  - INJECTION SITE ERYTHEMA [None]
  - INJECTION SITE PRURITUS [None]
  - URINARY TRACT INFECTION [None]
